FAERS Safety Report 8403060-6 (Version None)
Quarter: 2012Q2

REPORT INFORMATION
  Report Type: 
  Country: None (occurrence: None)
  Receive Date: 20120601
  Receipt Date: 20120523
  Transmission Date: 20120825
  Serious: Yes (Hospitalization)
  Sender: FDA-Public Use
  Company Number: US-ELI_LILLY_AND_COMPANY-US201205008939

PATIENT
  Age: 64 Year
  Sex: Female

DRUGS (7)
  1. COUMADIN [Concomitant]
     Dosage: UNK
  2. HUMALOG [Suspect]
     Indication: DIABETES MELLITUS
     Dosage: UNK, TID
  3. ANTIHYPERTENSIVES [Concomitant]
     Dosage: UNK
  4. HUMALOG [Suspect]
     Dosage: UNK, TID
  5. HUMALOG [Suspect]
     Dosage: UNK, TID
  6. HUMALOG [Suspect]
     Dosage: UNK, TID
  7. LEVEMIR [Concomitant]
     Dosage: UNK

REACTIONS (8)
  - WOUND INFECTION [None]
  - FATIGUE [None]
  - IMPAIRED HEALING [None]
  - WOUND COMPLICATION [None]
  - AORTIC VALVE REPLACEMENT [None]
  - CORONARY ARTERY BYPASS [None]
  - WOUND DEHISCENCE [None]
  - FEELING ABNORMAL [None]
